FAERS Safety Report 8180289-6 (Version None)
Quarter: 2012Q1

REPORT INFORMATION
  Report Type: 
  Country: None (occurrence: None)
  Receive Date: 20120215
  Receipt Date: 20120209
  Transmission Date: 20120608
  Serious: Yes (Other)
  Sender: FDA-Public Use
  Company Number: 2012030706

PATIENT
  Age: 60 Year
  Sex: Female
  Weight: 88.905 kg

DRUGS (21)
  1. HIZENTRA [Suspect]
  2. RANITIDINE HYDROCHLORIDE [Concomitant]
  3. HIZENTRA [Suspect]
  4. SINGULAIR [Concomitant]
  5. POLYETHYLENE GLUCOL (MACROGOL) [Concomitant]
  6. METOCLOPRAMIDE [Concomitant]
  7. VITAMIN D [Concomitant]
  8. HIZENTRA [Suspect]
  9. HIZENTRA [Suspect]
  10. FENOFIBRATE [Concomitant]
  11. PROMETHAZINE (GALENIC/CODEINE/PROMETHAZINE) [Concomitant]
  12. OXYGEN OXYGEN) [Concomitant]
  13. MUCINEX [Concomitant]
  14. HIZENTRA [Suspect]
  15. TRIAMTERENE HCTZ (DYAZIDE) [Concomitant]
  16. OMEPRAZOLE [Concomitant]
  17. JANUMET (DRUG USED IN DIABETES) [Concomitant]
  18. HIZENTRA [Suspect]
     Indication: IMMUNODEFICIENCY COMMON VARIABLE
     Dosage: 10 MG 1X/WEEK, 50 ML - 4 SITES OVER 1 HOUR AND 17 MINUTES, SUBCUTANEOUS, 10 G1X/WEEK, 2 GM, (10 ML)
     Route: 058
     Dates: start: 20111128, end: 20111128
  19. HIZENTRA [Suspect]
     Indication: IMMUNODEFICIENCY COMMON VARIABLE
     Dosage: 10 MG 1X/WEEK, 50 ML - 4 SITES OVER 1 HOUR AND 17 MINUTES, SUBCUTANEOUS, 10 G1X/WEEK, 2 GM, (10 ML)
     Route: 058
     Dates: start: 20111021
  20. AMBIEN [Concomitant]
  21. VESICARE [Concomitant]

REACTIONS (2)
  - PYREXIA [None]
  - FATIGUE [None]
